FAERS Safety Report 4782300-9 (Version None)
Quarter: 2005Q3

REPORT INFORMATION
  Report Type: 
  Country: None (occurrence: None)
  Receive Date: 20050927
  Receipt Date: 20050923
  Transmission Date: 20060218
  Serious: Yes (Other)
  Sender: FDA-Public Use
  Company Number: 200511407BWH

PATIENT
  Sex: 0

DRUGS (2)
  1. AVELOX [Suspect]
  2. COUMADIN [Suspect]

REACTIONS (2)
  - DRUG INTERACTION [None]
  - GASTROINTESTINAL HAEMORRHAGE [None]
